FAERS Safety Report 9109447 (Version 1)
Quarter: 2013Q1

REPORT INFORMATION
  Report Type: Spontaneous
  Country: GB (occurrence: GB)
  Receive Date: 20130222
  Receipt Date: 20130222
  Transmission Date: 20140127
  Serious: Yes (Other)
  Sender: FDA-Public Use
  Company Number: GB-JNJFOC-20130211317

PATIENT
  Age: 32 Year
  Sex: Male

DRUGS (1)
  1. NICORETTE [Suspect]
     Indication: SMOKING CESSATION THERAPY
     Route: 065

REACTIONS (8)
  - Nicotine dependence [Unknown]
  - Intentional overdose [Unknown]
  - Intentional drug misuse [Unknown]
  - Depression [Unknown]
  - Fatigue [Unknown]
  - Dry mouth [Unknown]
  - Anxiety [Unknown]
  - Headache [Unknown]
